FAERS Safety Report 7928448-9 (Version None)
Quarter: 2011Q4

REPORT INFORMATION
  Report Type: 
  Country: None (occurrence: None)
  Receive Date: 20111118
  Receipt Date: 20111109
  Transmission Date: 20120403
  Serious: Yes (Hospitalization)
  Sender: FDA-Public Use
  Company Number: PHHY2011CA29285

PATIENT
  Sex: Female

DRUGS (2)
  1. ESTROGENS CONJUGATED [Concomitant]
  2. SANDOSTATIN LAR [Suspect]
     Indication: DIARRHOEA
     Dosage: 30 MG, QMO
     Route: 030
     Dates: start: 20101116

REACTIONS (5)
  - DIARRHOEA [None]
  - PNEUMONIA [None]
  - ASTHENIA [None]
  - PERICARDIAL EFFUSION [None]
  - ABDOMINAL PAIN UPPER [None]
